FAERS Safety Report 4588130-5 (Version None)
Quarter: 2005Q1

REPORT INFORMATION
  Report Type: 
  Country: None (occurrence: None)
  Receive Date: 20050221
  Receipt Date: 20050211
  Transmission Date: 20050727
  Serious: Yes (Other)
  Sender: FDA-Public Use
  Company Number: PHEH2005US01975

PATIENT
  Age: 100 Year
  Sex: Female

DRUGS (1)
  1. ZELNORM [Suspect]
     Indication: IRRITABLE BOWEL SYNDROME
     Dosage: 6 MG, QOD
     Route: 048

REACTIONS (2)
  - ABDOMINAL DISCOMFORT [None]
  - CREATININE RENAL CLEARANCE DECREASED [None]
